FAERS Safety Report 7214399-4 (Version None)
Quarter: 2011Q1

REPORT INFORMATION
  Report Type: 
  Country: None (occurrence: None)
  Receive Date: 20110107
  Receipt Date: 20101229
  Transmission Date: 20110831
  Serious: Yes (Other)
  Sender: FDA-Public Use
  Company Number: PHHY2010US89453

PATIENT
  Sex: Female

DRUGS (1)
  1. GILENYA [Suspect]
     Dosage: 1 DF, QD
     Route: 048

REACTIONS (4)
  - BLOOD PRESSURE DECREASED [None]
  - HEART RATE DECREASED [None]
  - NERVOUSNESS [None]
  - PALPITATIONS [None]
